FAERS Safety Report 14030924 (Version 2)
Quarter: 2017Q4

REPORT INFORMATION
  Report Type: Spontaneous
  Country: US (occurrence: US)
  Receive Date: 20171002
  Receipt Date: 20171004
  Transmission Date: 20180321
  Serious: Yes (Hospitalization, Other)
  Sender: FDA-Public Use
  Company Number: US-AMGEN-USASP2017146573

PATIENT
  Age: 81 Year
  Sex: Male

DRUGS (6)
  1. RITUXIMAB. [Suspect]
     Active Substance: RITUXIMAB
     Indication: CHRONIC LYMPHOCYTIC LEUKAEMIA
     Dosage: 375 MG/M2, DAY 3 (CYCLE 1 ONLY) DAY 1 (CYCLES 2-6)
     Route: 042
     Dates: start: 20090921
  2. PEGFILGRASTIM [Suspect]
     Active Substance: PEGFILGRASTIM
     Indication: CHRONIC LYMPHOCYTIC LEUKAEMIA
     Dosage: 6 MG, DAY 3 OF COURSE 1 AND ON DAY 2 OF COURSES 2-6
     Route: 058
     Dates: start: 20090921
  3. CYCLOPHOSPHAMIDE. [Suspect]
     Active Substance: CYCLOPHOSPHAMIDE
     Indication: CHRONIC LYMPHOCYTIC LEUKAEMIA
     Dosage: 600 MG/M2, DAY 2 (CYCLE 1 ONLY) DAY 1 (CYCLES 2-6)
     Route: 042
     Dates: start: 20090921
  4. BEVACIZUMAB. [Suspect]
     Active Substance: BEVACIZUMAB
     Indication: CHRONIC LYMPHOCYTIC LEUKAEMIA
     Dosage: 15 MG/KG, DAY 1 CYCLES 1-5 DAY 1, 22 ET 43 CYCLE 8
     Route: 042
     Dates: start: 20090921
  5. RITUXIMAB. [Suspect]
     Active Substance: RITUXIMAB
     Dosage: 100 MG, DAY 2 (CYCLE 1 ONLY)
     Route: 042
  6. PENTOSTATIN. [Suspect]
     Active Substance: PENTOSTATIN
     Indication: CHRONIC LYMPHOCYTIC LEUKAEMIA
     Dosage: 4 MG/M2, DAY 2 (CYCLE 1 ONLY) DAY 1 (CYCLES 2-6)
     Route: 042
     Dates: start: 20090921

REACTIONS (7)
  - Urinary bladder haemorrhage [Unknown]
  - Dyspnoea [Unknown]
  - Cystitis [Unknown]
  - Lung infiltration [Unknown]
  - Oedema peripheral [Unknown]
  - Cough [Unknown]
  - Proteinuria [Unknown]

NARRATIVE: CASE EVENT DATE: 20100225
